FAERS Safety Report 8367279-5 (Version None)
Quarter: 2012Q2

REPORT INFORMATION
  Report Type: 
  Country: None (occurrence: None)
  Receive Date: 20120517
  Receipt Date: 20120510
  Transmission Date: 20120825
  Serious: Yes (Death, Other)
  Sender: FDA-Public Use
  Company Number: BR-BRISTOL-MYERS SQUIBB COMPANY-16513921

PATIENT
  Age: 60 Year
  Sex: Female
  Weight: 62 kg

DRUGS (1)
  1. SPRYCEL [Suspect]
     Indication: CHRONIC MYELOID LEUKAEMIA
     Dosage: DOSE DECREASED TO 70 MG/DAY AND AGAIN INCREASED TO 100 MG/DAY
     Route: 048
     Dates: start: 20110101

REACTIONS (4)
  - NEOPLASM MALIGNANT [None]
  - DEATH [None]
  - SPLENOMEGALY [None]
  - ANAEMIA [None]
